FAERS Safety Report 5803184-3 (Version None)
Quarter: 2008Q3

REPORT INFORMATION
  Report Type: 
  Country: None (occurrence: None)
  Receive Date: 20080701
  Receipt Date: 20080212
  Transmission Date: 20090109
  Serious: Yes (Other)
  Sender: FDA-Public Use
  Company Number: US200802002551

PATIENT
  Sex: Female

DRUGS (4)
  1. HUMALOG [Suspect]
     Dates: start: 20071101
  2. HUMALOG [Suspect]
     Dates: start: 20071101
  3. HUMULIN 70/30 [Suspect]
     Dates: end: 20071101
  4. ACTOS [Concomitant]

REACTIONS (4)
  - BLOOD GLUCOSE DECREASED [None]
  - BLOOD GLUCOSE INCREASED [None]
  - LOSS OF CONSCIOUSNESS [None]
  - STOMACH DISCOMFORT [None]
